FAERS Safety Report 8241852-7 (Version None)
Quarter: 2012Q1

REPORT INFORMATION
  Report Type: 
  Country: None (occurrence: None)
  Receive Date: 20120328
  Receipt Date: 20120320
  Transmission Date: 20120608
  Serious: Yes (Other)
  Sender: FDA-Public Use
  Company Number: US-ASTRAZENECA-2012SE18825

PATIENT
  Age: 69 Year
  Sex: Female
  Weight: 77.1 kg

DRUGS (3)
  1. NEXIUM [Suspect]
     Indication: GASTROOESOPHAGEAL REFLUX DISEASE
     Route: 048
     Dates: start: 20100101
  2. CRESTOR [Suspect]
     Indication: BLOOD CHOLESTEROL
     Route: 048
  3. MELOXICAM [Concomitant]
     Indication: TENDON RUPTURE

REACTIONS (5)
  - CATARACT [None]
  - VISION BLURRED [None]
  - MACULAR FIBROSIS [None]
  - TENDON RUPTURE [None]
  - WRONG TECHNIQUE IN DRUG USAGE PROCESS [None]
